FAERS Safety Report 9299289 (Version 1)
Quarter: 2013Q2

REPORT INFORMATION
  Report Type: Spontaneous
  Country: US (occurrence: US)
  Receive Date: 20130520
  Receipt Date: 20130520
  Transmission Date: 20140414
  Serious: Yes (Other)
  Sender: FDA-Public Use
  Company Number: PHHY2013US048776

PATIENT
  Age: 93 Year
  Sex: Female

DRUGS (2)
  1. LISINOPRIL [Suspect]
     Dosage: 2.5 MG, QD
  2. LISINOPRIL [Suspect]
     Dosage: 15 MG, QD

REACTIONS (2)
  - Hallucination, visual [Recovered/Resolved]
  - Agitation [Recovered/Resolved]
